FAERS Safety Report 14203572 (Version 4)
Quarter: 2023Q1

REPORT INFORMATION
  Report Type: Other
  Country: GB (occurrence: GB)
  Receive Date: 20171120
  Receipt Date: 20230310
  Transmission Date: 20230418
  Serious: Yes (Hospitalization, Other)
  Sender: FDA-Public Use
  Company Number: GB-ROCHE-2014563

PATIENT
  Age: 78 Year
  Sex: Male

DRUGS (10)
  1. TOCILIZUMAB [Suspect]
     Active Substance: TOCILIZUMAB
     Indication: Rheumatoid arthritis
     Dosage: MOST RECENT DOSE ON 04/SEP/2017
     Route: 058
     Dates: start: 20141209
  2. TOCILIZUMAB [Suspect]
     Active Substance: TOCILIZUMAB
     Route: 058
     Dates: start: 2019
  3. ACETAMINOPHEN [Concomitant]
     Active Substance: ACETAMINOPHEN
     Indication: Pain
  4. BISOPROLOL [Concomitant]
     Active Substance: BISOPROLOL
  5. CALCIUM CARBONATE\CHOLECALCIFEROL [Concomitant]
     Active Substance: CALCIUM CARBONATE\CHOLECALCIFEROL
  6. APIXABAN [Concomitant]
     Active Substance: APIXABAN
  7. LANSOPRAZOLE [Concomitant]
     Active Substance: LANSOPRAZOLE
  8. FUROSEMIDE [Concomitant]
     Active Substance: FUROSEMIDE
  9. FUROSEMIDE [Concomitant]
     Active Substance: FUROSEMIDE
  10. RAMIPRIL [Concomitant]
     Active Substance: RAMIPRIL

REACTIONS (7)
  - Rheumatoid arthritis [Unknown]
  - Renal haemorrhage [Unknown]
  - Joint stiffness [Unknown]
  - Haemorrhage [Unknown]
  - Circulatory collapse [Unknown]
  - Subcapsular renal haematoma [Unknown]
  - Condition aggravated [Unknown]
